FAERS Safety Report 10904044 (Version 5)
Quarter: 2016Q1

REPORT INFORMATION
  Report Type: Report from Study
  Country: IT (occurrence: IT)
  Receive Date: 20150311
  Receipt Date: 20160120
  Transmission Date: 20160525
  Serious: Yes (Death, Other)
  Sender: FDA-Public Use
  Company Number: IT-CELGENE-083-21880-13012570

PATIENT

DRUGS (8)
  1. CYCLOPHOSPHAMIDE. [Concomitant]
     Active Substance: CYCLOPHOSPHAMIDE
     Indication: PLASMA CELL MYELOMA
     Dosage: 50 MG/DAY FOR 21 DAYS IN PTS 65-75 YEARS OLD AND 50 MG EVERY OTHER DAY IN }75 YEARS PTS
     Route: 048
     Dates: start: 200910, end: 201210
  2. REVLIMID [Suspect]
     Active Substance: LENALIDOMIDE
     Indication: PLASMA CELL MYELOMA
     Route: 048
     Dates: start: 200910, end: 201210
  3. MELPHALAN [Concomitant]
     Active Substance: MELPHALAN
     Indication: PLASMA CELL MYELOMA
     Dosage: 0.18 MG/KG FOR 4 DAYS IN PTS 65-75 YEARS OLD AND 0.13 MG/KG IN }75 YEARS PTS
     Route: 048
     Dates: start: 200910, end: 201210
  4. PREDNISONE. [Concomitant]
     Active Substance: PREDNISONE
     Indication: PLASMA CELL MYELOMA
     Route: 048
     Dates: start: 200910, end: 201210
  5. PREDNISONE. [Concomitant]
     Active Substance: PREDNISONE
     Route: 048
     Dates: start: 200910, end: 201210
  6. DEXAMETHASONE. [Concomitant]
     Active Substance: DEXAMETHASONE
     Indication: PLASMA CELL MYELOMA
     Dosage: DAYS 1,8,15 AND 22
     Route: 065
     Dates: start: 200910, end: 201210
  7. REVLIMID [Suspect]
     Active Substance: LENALIDOMIDE
     Route: 048
     Dates: start: 200910, end: 201210
  8. REVLIMID [Suspect]
     Active Substance: LENALIDOMIDE
     Dosage: MAINTENANCE
     Route: 048

REACTIONS (28)
  - General physical health deterioration [Fatal]
  - Angiopathy [Fatal]
  - Acute lymphocytic leukaemia [Unknown]
  - Febrile neutropenia [Unknown]
  - Anaemia [Unknown]
  - Fatigue [Unknown]
  - Pneumonia [Unknown]
  - Skin toxicity [Unknown]
  - Adverse event [Unknown]
  - Thrombocytopenia [Unknown]
  - Cardiac failure [Unknown]
  - Enteritis [Unknown]
  - Death [Fatal]
  - Infection [Fatal]
  - Cerebrovascular accident [Fatal]
  - Deep vein thrombosis [Unknown]
  - Sudden death [Fatal]
  - Cardiac disorder [Fatal]
  - Arrhythmia [Unknown]
  - Neutropenia [Unknown]
  - Bronchitis [Unknown]
  - Sepsis [Unknown]
  - Pulmonary embolism [Fatal]
  - Pyrexia [Unknown]
  - Viral infection [Unknown]
  - Neoplasm [Unknown]
  - Acute myocardial infarction [Unknown]
  - Neuropathy peripheral [Unknown]
